FAERS Safety Report 15331835 (Version 1)
Quarter: 2018Q4

REPORT INFORMATION
  Report Type: Spontaneous
  Country: US (occurrence: US)
  Receive Date: 20180829
  Receipt Date: 20180829
  Transmission Date: 20190204
  Serious: Yes (Hospitalization)
  Sender: FDA-Public Use
  Company Number: US-SPROUT PHARMACEUTICALS, INC.-2018SP000068

PATIENT
  Age: 2 Year
  Sex: Male

DRUGS (1)
  1. FLIBANSERIN (POST STUDY) [Suspect]
     Active Substance: FLIBANSERIN
     Indication: PRODUCT USED FOR UNKNOWN INDICATION
     Dosage: SUSPECTED TO HAVE CONSUMED?A MAXIMUM OF SIX 100 MG TABLETS OF FLIBANSERIN
     Route: 048

REACTIONS (17)
  - Postictal state [Recovering/Resolving]
  - Hypotonia [Recovered/Resolved]
  - Hypertension [Recovering/Resolving]
  - Depressed level of consciousness [Recovering/Resolving]
  - Accidental exposure to product by child [Unknown]
  - Unresponsive to stimuli [Recovered/Resolved]
  - Seizure like phenomena [Recovered/Resolved]
  - Drug screen positive [Unknown]
  - Body temperature increased [Unknown]
  - Corneal reflex decreased [Recovered/Resolved]
  - Dysarthria [Recovering/Resolving]
  - Muscle twitching [Recovered/Resolved]
  - Pupillary reflex impaired [Recovering/Resolving]
  - Toxicity to various agents [Recovering/Resolving]
  - Dysmetria [Recovering/Resolving]
  - Mydriasis [Recovering/Resolving]
  - Balance disorder [Recovering/Resolving]
